FAERS Safety Report 9894134 (Version 1)
Quarter: 2014Q1

REPORT INFORMATION
  Report Type: Report from Study
  Country: IT (occurrence: IT)
  Receive Date: 20140213
  Receipt Date: 20140213
  Transmission Date: 20141002
  Serious: Yes (Hospitalization)
  Sender: FDA-Public Use
  Company Number: IT-ROCHE-1343877

PATIENT
  Age: 80 Year
  Sex: Male
  Weight: 61.5 kg

DRUGS (11)
  1. METHOXY POLYETHYLENE GLYCOL-EPOETIN BETA [Suspect]
     Indication: NEPHROGENIC ANAEMIA
     Route: 058
     Dates: start: 20091117
  2. METHOXY POLYETHYLENE GLYCOL-EPOETIN BETA [Suspect]
     Dosage: LAST DOSE PRIOR TO SAE.
     Route: 058
     Dates: start: 20140114
  3. CARDIOASPIRIN [Concomitant]
     Route: 065
     Dates: start: 20120217
  4. OMEPRAZOLO [Concomitant]
     Route: 065
     Dates: start: 20070913
  5. AMLODIPINE [Concomitant]
     Route: 065
     Dates: start: 20070913
  6. IRBESARTAN [Concomitant]
     Route: 065
     Dates: start: 20070913
  7. DOXAZOSIN [Concomitant]
     Route: 065
     Dates: start: 20090901
  8. ATORVASTATIN [Concomitant]
     Route: 065
     Dates: start: 20070913
  9. OMEGA 3 [Concomitant]
     Route: 065
     Dates: start: 20090409
  10. CLONIDINA [Concomitant]
     Route: 065
     Dates: start: 20070913
  11. INSULIN [Concomitant]
     Route: 065
     Dates: start: 20070913

REACTIONS (2)
  - Pyrexia [Unknown]
  - Cough [Unknown]
